FAERS Safety Report 5394545-8 (Version None)
Quarter: 2007Q3

REPORT INFORMATION
  Report Type: 
  Country: None (occurrence: None)
  Receive Date: 20070723
  Receipt Date: 20070709
  Transmission Date: 20080115
  Serious: Yes (Other)
  Sender: FDA-Public Use
  Company Number: GB-ELI_LILLY_AND_COMPANY-GB200610005271

PATIENT
  Age: 67 Year
  Sex: Male

DRUGS (10)
  1. FLUOXETINE [Suspect]
     Indication: DEPRESSION
     Dosage: 20 MG, 2/D
     Route: 065
  2. DIHYDROCODEINE BITARTRATE INJ [Concomitant]
     Dosage: 120 MG, 3/D
     Route: 065
  3. ACETYLSALICYLIC ACID SRT [Concomitant]
     Dosage: 75 MG, DAILY (1/D)
     Route: 065
  4. GLICLAZIDE [Concomitant]
     Dosage: 40 MG, 2/D
     Route: 065
  5. METFORMIN HCL [Concomitant]
     Dosage: 1 G, 2/D
     Route: 065
  6. PERINDOPRIL [Concomitant]
     Dosage: 4 MG, DAILY (1/D)
     Route: 065
  7. ROSIGLITAZONE [Concomitant]
     Dosage: 4 MG, 2/D
     Route: 065
  8. SIMVASTATIN [Concomitant]
     Dosage: 20 MG
     Route: 065
  9. TILDIEM [Concomitant]
     Dosage: 60 MG, 3/D
     Route: 065
  10. ACOMPLIA [Concomitant]
     Indication: DIABETES MELLITUS
     Dosage: 20 MG, DAILY (1/D)
     Route: 048
     Dates: start: 20060722, end: 20060815

REACTIONS (10)
  - AGITATION [None]
  - ANGER [None]
  - CONFUSIONAL STATE [None]
  - DELUSION [None]
  - DRUG WITHDRAWAL SYNDROME [None]
  - FEELING JITTERY [None]
  - HALLUCINATION, AUDITORY [None]
  - HALLUCINATION, VISUAL [None]
  - IRRITABILITY [None]
  - PSYCHOTIC DISORDER [None]
